FAERS Safety Report 19929040 (Version 1)
Quarter: 2021Q4

REPORT INFORMATION
  Report Type: Spontaneous
  Country: US (occurrence: US)
  Receive Date: 20211007
  Receipt Date: 20211007
  Transmission Date: 20220304
  Serious: No
  Sender: FDA-Public Use
  Company Number: US-RECORDATI RARE DISEASES INC.-2021002523

PATIENT
  Sex: Male

DRUGS (1)
  1. PANHEMATIN [Suspect]
     Active Substance: HEMIN
     Indication: Product used for unknown indication
     Dosage: 3 MILLIGRAM/KILOGRAM, UNK
     Route: 042

REACTIONS (3)
  - Phlebitis [Unknown]
  - Therapy interrupted [Unknown]
  - Off label use [Unknown]
